FAERS Safety Report 10037983 (Version 1)
Quarter: 2014Q1

REPORT INFORMATION
  Report Type: Spontaneous
  Country: US (occurrence: None)
  Receive Date: 20140306
  Receipt Date: 20140306
  Transmission Date: 20141002
  Serious: Yes (Hospitalization, Other)
  Sender: FDA-Public Use
  Company Number: 163-21880-13102201

PATIENT
  Age: 91 Year
  Sex: Male

DRUGS (5)
  1. REVLIMID [Suspect]
     Indication: PLASMA CELL MYELOMA
     Dosage: 25 MG, 21 IN 21 D, PO
     Route: 048
     Dates: start: 20130403
  2. OMEGA 3 [Concomitant]
  3. LUTEIN [Concomitant]
  4. LISINOPRIL [Concomitant]
  5. BLOOD (BLOOD AND RELATED PRODUCTS) [Concomitant]

REACTIONS (4)
  - Decreased appetite [None]
  - Vision blurred [None]
  - Dehydration [None]
  - Full blood count decreased [None]
